FAERS Safety Report 11639846 (Version 8)
Quarter: 2016Q4

REPORT INFORMATION
  Report Type: Report from Study
  Country: US (occurrence: US)
  Receive Date: 20151019
  Receipt Date: 20161219
  Transmission Date: 20170206
  Serious: Yes (Hospitalization)
  Sender: FDA-Public Use
  Company Number: US-EISAI MEDICAL RESEARCH-EC-2015-010809

PATIENT
  Age: 64 Year
  Sex: Male
  Weight: 96.2 kg

DRUGS (22)
  1. FAMOTIDINE. [Concomitant]
     Active Substance: FAMOTIDINE
  2. AVAPRO [Suspect]
     Active Substance: IRBESARTAN
     Indication: PRODUCT USED FOR UNKNOWN INDICATION
     Dosage: DOSE UNKNOWN
     Route: 048
  3. METAXALONE. [Concomitant]
     Active Substance: METAXALONE
  4. TOPROL XL [Concomitant]
     Active Substance: METOPROLOL SUCCINATE
  5. LENVIMA [Suspect]
     Active Substance: LENVATINIB
     Route: 048
     Dates: start: 2015, end: 201608
  6. VENTOLIN [Concomitant]
     Active Substance: ALBUTEROL SULFATE
  7. SYNTHROID [Concomitant]
     Active Substance: LEVOTHYROXINE SODIUM
  8. IRBESARTAN. [Concomitant]
     Active Substance: IRBESARTAN
  9. VIAGRA [Concomitant]
     Active Substance: SILDENAFIL CITRATE
  10. AMOXICILLIN. [Concomitant]
     Active Substance: AMOXICILLIN
  11. LENVIMA [Suspect]
     Active Substance: LENVATINIB
     Indication: THYROID CANCER
     Route: 048
     Dates: start: 20150909, end: 20151026
  12. NEXIUM [Concomitant]
     Active Substance: ESOMEPRAZOLE MAGNESIUM
  13. LIDOCAINE. [Concomitant]
     Active Substance: LIDOCAINE
  14. IMODIUM [Concomitant]
     Active Substance: LOPERAMIDE HYDROCHLORIDE
  15. ZOFRAN [Concomitant]
     Active Substance: ONDANSETRON HYDROCHLORIDE
  16. PROMETHAZINE-CODEINE SYRUP [Concomitant]
  17. PRAVASTATIN. [Concomitant]
     Active Substance: PRAVASTATIN
  18. HYDROCODONE-ACETAMINOPHEN [Concomitant]
     Active Substance: ACETAMINOPHEN\HYDROCODONE
  19. LENVIMA [Suspect]
     Active Substance: LENVATINIB
     Route: 048
     Dates: start: 2016
  20. FLOMAX [Concomitant]
     Active Substance: TAMSULOSIN HYDROCHLORIDE
  21. LABETALOL [Concomitant]
     Active Substance: LABETALOL\LABETALOL HYDROCHLORIDE
  22. PREDNISONE. [Concomitant]
     Active Substance: PREDNISONE

REACTIONS (19)
  - Alopecia [Unknown]
  - Fatigue [Unknown]
  - Tongue discolouration [Unknown]
  - Temperature intolerance [Unknown]
  - Diarrhoea [Unknown]
  - Central nervous system lesion [Unknown]
  - Lip swelling [Recovered/Resolved]
  - Dysphonia [Unknown]
  - Vomiting [Unknown]
  - Blood pressure fluctuation [Unknown]
  - Nausea [Unknown]
  - Dizziness [Recovered/Resolved]
  - Dry skin [Unknown]
  - Weight decreased [Unknown]
  - Decreased appetite [Unknown]
  - Pruritus [Unknown]
  - Hypertension [Not Recovered/Not Resolved]
  - Hypoaesthesia oral [Unknown]
  - Tongue blistering [Unknown]

NARRATIVE: CASE EVENT DATE: 2015
